FAERS Safety Report 16165490 (Version 3)
Quarter: 2020Q1

REPORT INFORMATION
  Report Type: Spontaneous
  Country: US (occurrence: US)
  Receive Date: 20190405
  Receipt Date: 20200317
  Transmission Date: 20200409
  Serious: Yes (Hospitalization, Other)
  Sender: FDA-Public Use
  Company Number: US-ASTRAZENECA-2019SE49095

PATIENT
  Age: 21743 Day
  Sex: Female
  Weight: 83.5 kg

DRUGS (18)
  1. LISINOPRIL. [Concomitant]
     Active Substance: LISINOPRIL
  2. KOMBIGLYZE XR [Suspect]
     Active Substance: METFORMIN HYDROCHLORIDE\SAXAGLIPTIN HYDROCHLORIDE
     Indication: TYPE 2 DIABETES MELLITUS
     Route: 048
     Dates: start: 20170627
  3. ONGLYZA [Suspect]
     Active Substance: SAXAGLIPTIN HYDROCHLORIDE
     Route: 048
  4. FUROSEMIDE. [Concomitant]
     Active Substance: FUROSEMIDE
     Route: 048
  5. HYDROCODONE [Concomitant]
     Active Substance: HYDROCODONE
     Dosage: 325 MG PER TABLET
  6. KOMBIGLYZE XR [Suspect]
     Active Substance: METFORMIN HYDROCHLORIDE\SAXAGLIPTIN HYDROCHLORIDE
     Indication: TYPE 2 DIABETES MELLITUS
     Route: 048
     Dates: start: 20170627, end: 20180629
  7. HUMALOG [Concomitant]
     Active Substance: INSULIN LISPRO
  8. NAPROXEN. [Concomitant]
     Active Substance: NAPROXEN
  9. CITALOPRAM [Concomitant]
     Active Substance: CITALOPRAM HYDROBROMIDE
  10. LEVOTHYROXINE. [Concomitant]
     Active Substance: LEVOTHYROXINE
     Dates: start: 20181009
  11. KEFLEX [Concomitant]
     Active Substance: CEPHALEXIN
     Route: 048
     Dates: start: 20181009
  12. LANTUS [Concomitant]
     Active Substance: INSULIN GLARGINE
  13. ASPIRIN. [Concomitant]
     Active Substance: ASPIRIN
  14. METFORMIN [Concomitant]
     Active Substance: METFORMIN HYDROCHLORIDE
     Route: 048
     Dates: start: 20181009
  15. LASIX [Concomitant]
     Active Substance: FUROSEMIDE
     Route: 048
     Dates: start: 20181009
  16. SPIRONOLACTONE. [Concomitant]
     Active Substance: SPIRONOLACTONE
  17. LOVASTATIN. [Concomitant]
     Active Substance: LOVASTATIN
  18. COREG [Concomitant]
     Active Substance: CARVEDILOL
     Route: 048
     Dates: start: 20181009

REACTIONS (8)
  - Dyspnoea [Unknown]
  - Chest pain [Unknown]
  - Bundle branch block left [Unknown]
  - Cardiomyopathy [Unknown]
  - Cardiac failure [Unknown]
  - Acute left ventricular failure [Unknown]
  - Acute respiratory failure [Unknown]
  - Cardiac failure congestive [Unknown]

NARRATIVE: CASE EVENT DATE: 20171215
